FAERS Safety Report 7398832-3 (Version None)
Quarter: 2011Q2

REPORT INFORMATION
  Report Type: 
  Country: None (occurrence: None)
  Receive Date: 20110404
  Receipt Date: 20110404
  Transmission Date: 20111010
  Serious: Yes (Other)
  Sender: FDA-Public Use
  Company Number: None

PATIENT
  Age: 58 Year
  Sex: Female

DRUGS (1)
  1. VALPROIC ACID UNKNOWN UNKNOWN [Suspect]
     Dosage: 2500MG EVERY 6 HOURS
     Dates: start: 20101207, end: 20101210

REACTIONS (2)
  - HYPERAMMONAEMIA [None]
  - ENCEPHALOPATHY [None]
